FAERS Safety Report 6299025-3 (Version None)
Quarter: 2009Q3

REPORT INFORMATION
  Report Type: 
  Country: None (occurrence: None)
  Receive Date: 20090806
  Receipt Date: 20070827
  Transmission Date: 20100115
  Serious: Yes (Other)
  Sender: FDA-Public Use
  Company Number: US-ASTRAZENECA-2006UW07996

PATIENT
  Age: 40 Year
  Sex: Female
  Weight: 95.3 kg

DRUGS (21)
  1. SEROQUEL [Suspect]
     Indication: SLEEP DISORDER
     Route: 048
     Dates: start: 20040401
  2. SEROQUEL [Suspect]
     Indication: SCHIZOPHRENIA
     Route: 048
     Dates: start: 20040401
  3. SEROQUEL [Suspect]
     Dosage: 50-200 MG
     Route: 048
     Dates: start: 20040403, end: 20051208
  4. SEROQUEL [Suspect]
     Dosage: 50-200 MG
     Route: 048
     Dates: start: 20040403, end: 20051208
  5. CLOZARIL [Concomitant]
     Dosage: 5 TO 10 MG
     Dates: start: 20050401, end: 20060101
  6. RISPERDAL [Concomitant]
     Dates: start: 20050401, end: 20060101
  7. WELLBUTRIN SR [Concomitant]
     Dates: start: 20040403
  8. VIOXX [Concomitant]
     Dates: start: 20040403
  9. FLEXERIL [Concomitant]
     Route: 048
     Dates: start: 20040403
  10. ALTACE [Concomitant]
     Dates: start: 20040403
  11. NEURONTIN [Concomitant]
     Dates: start: 20051208
  12. VISTARIL [Concomitant]
     Dates: start: 20051208
  13. LEXAPRO [Concomitant]
     Dates: start: 20051208
  14. AVANDIA [Concomitant]
     Dates: start: 20051208
  15. ROBAXIN [Concomitant]
     Dosage: 75-2250MG
     Dates: start: 20050627
  16. BEXTRA [Concomitant]
     Dates: start: 20040702
  17. ALTOCOR [Concomitant]
     Dates: start: 20040406
  18. MIRTAZAPINE [Concomitant]
     Dates: start: 20040501
  19. NAPROSYN [Concomitant]
     Dates: start: 20050323
  20. RESTORIL [Concomitant]
     Dates: start: 20050323
  21. AVANDAMET [Concomitant]
     Dates: start: 20050323

REACTIONS (4)
  - DIABETES MELLITUS [None]
  - DIABETIC NEUROPATHY [None]
  - OBESITY [None]
  - TYPE 2 DIABETES MELLITUS [None]
